FAERS Safety Report 5338998-X (Version None)
Quarter: 2007Q2

REPORT INFORMATION
  Report Type: 
  Country: None (occurrence: None)
  Receive Date: 20070403
  Receipt Date: 20061002
  Transmission Date: 20071010
  Serious: Yes (Hospitalization)
  Sender: FDA-Public Use
  Company Number: 200610741

PATIENT
  Sex: Male

DRUGS (1)
  1. STIMATE [Suspect]
     Dosage: IN
     Dates: start: 20060901

REACTIONS (2)
  - CONVULSION [None]
  - HYPONATRAEMIA [None]
